FAERS Safety Report 7707900-5 (Version None)
Quarter: 2011Q3

REPORT INFORMATION
  Report Type: 
  Country: None (occurrence: None)
  Receive Date: 20110824
  Receipt Date: 20110822
  Transmission Date: 20111222
  Serious: Yes (Hospitalization, Disabling, Other)
  Sender: FDA-Public Use
  Company Number: US-MERCK-1106USA00886

PATIENT
  Age: 54 Year
  Sex: Female

DRUGS (4)
  1. FOSAMAX [Suspect]
     Route: 048
     Dates: start: 20060101, end: 20100101
  2. FOSAMAX [Suspect]
     Indication: BONE DENSITY DECREASED
     Route: 048
     Dates: start: 20060101, end: 20100101
  3. [THERAPY UNSPECIFIED] [Concomitant]
     Dosage: CHOLESTEROL-LOWERING MEDICATION
     Route: 065
  4. [THERAPY UNSPECIFIED] [Concomitant]
     Dosage: TREATMENT OF DIABETES
     Route: 065

REACTIONS (12)
  - TOOTH DISORDER [None]
  - UPPER LIMB FRACTURE [None]
  - DEPRESSION [None]
  - FEMUR FRACTURE [None]
  - LOW TURNOVER OSTEOPATHY [None]
  - BRUXISM [None]
  - GASTROINTESTINAL DISORDER [None]
  - FEMORAL NECK FRACTURE [None]
  - ARTHROPATHY [None]
  - ANXIETY [None]
  - OSTEOPOROSIS [None]
  - DENTAL CARIES [None]
